FAERS Safety Report 6579988-9 (Version None)
Quarter: 2010Q1

REPORT INFORMATION
  Report Type: 
  Country: None (occurrence: None)
  Receive Date: 20100203
  Receipt Date: 20100119
  Transmission Date: 20100710
  Serious: Yes (Hospitalization)
  Sender: FDA-Public Use
  Company Number: B0629435A

PATIENT
  Age: 65 Year
  Sex: Male

DRUGS (4)
  1. LAMIVUDINE [Suspect]
     Indication: HIV INFECTION
  2. EFAVIRENZ [Suspect]
     Indication: HIV INFECTION
  3. TENOFOVIR DISOPROXIL FUMARATE [Suspect]
     Indication: HIV INFECTION
  4. ANTIHYPERTENSIVE [Concomitant]

REACTIONS (6)
  - CEREBELLAR SYNDROME [None]
  - CEREBRAL ARTERY STENOSIS [None]
  - ISCHAEMIC STROKE [None]
  - LEUKOENCEPHALOPATHY [None]
  - MOYAMOYA DISEASE [None]
  - TACHYCARDIA [None]
